APPROVED DRUG PRODUCT: LIPIDIL
Active Ingredient: FENOFIBRATE
Strength: 100MG
Dosage Form/Route: CAPSULE;ORAL
Application: N019304 | Product #001
Applicant: ABBVIE INC
Approved: Dec 31, 1993 | RLD: No | RS: No | Type: DISCN